FAERS Safety Report 18771307 (Version 1)
Quarter: 2021Q1

REPORT INFORMATION
  Report Type: Spontaneous
  Country: US (occurrence: US)
  Receive Date: 20210121
  Receipt Date: 20210121
  Transmission Date: 20210419
  Serious: Yes (Other)
  Sender: FDA-Public Use
  Company Number: US-TEVA-2021-US-1870041

PATIENT
  Age: 94 Year
  Sex: Female

DRUGS (4)
  1. QUETIAPINE. [Suspect]
     Active Substance: QUETIAPINE
     Indication: CHARLES BONNET SYNDROME
     Dosage: 12.5 MILLIGRAM DAILY; NIGHTLY
     Route: 065
  2. QUETIAPINE. [Suspect]
     Active Substance: QUETIAPINE
     Indication: CHARLES BONNET SYNDROME
     Dosage: 50 MILLIGRAM DAILY; NIGHTLY
     Route: 065
  3. QUETIAPINE. [Suspect]
     Active Substance: QUETIAPINE
     Indication: CHARLES BONNET SYNDROME
     Dosage: PRN
     Route: 065
  4. QUETIAPINE. [Suspect]
     Active Substance: QUETIAPINE
     Indication: CHARLES BONNET SYNDROME
     Dosage: PRN
     Route: 065

REACTIONS (4)
  - Somnolence [Unknown]
  - Hip fracture [Unknown]
  - Fall [Unknown]
  - Balance disorder [Unknown]
